FAERS Safety Report 17565574 (Version 7)
Quarter: 2022Q4

REPORT INFORMATION
  Report Type: Spontaneous
  Country: US (occurrence: US)
  Receive Date: 20200320
  Receipt Date: 20221221
  Transmission Date: 20230113
  Serious: Yes (Other)
  Sender: FDA-Public Use
  Company Number: US-PFIZER INC-2020119555

PATIENT
  Age: 73 Year
  Sex: Female

DRUGS (1)
  1. XELJANZ XR [Suspect]
     Active Substance: TOFACITINIB CITRATE
     Dosage: 11 MG, DAILY

REACTIONS (14)
  - Rheumatoid arthritis [Unknown]
  - Spinal operation [Unknown]
  - Neck surgery [Unknown]
  - Weight fluctuation [Unknown]
  - Joint swelling [Recovering/Resolving]
  - Peripheral swelling [Unknown]
  - Peripheral coldness [Not Recovered/Not Resolved]
  - Muscular weakness [Unknown]
  - Hypoaesthesia [Unknown]
  - Musculoskeletal stiffness [Unknown]
  - Throat irritation [Unknown]
  - Pain [Unknown]
  - Eating disorder [Unknown]
  - Stress [Unknown]
